FAERS Safety Report 18049630 (Version 3)
Quarter: 2020Q4

REPORT INFORMATION
  Report Type: Spontaneous
  Country: JP (occurrence: JP)
  Receive Date: 20200721
  Receipt Date: 20201116
  Transmission Date: 20210113
  Serious: Yes (Death, Other)
  Sender: FDA-Public Use
  Company Number: JP-MYLANLABS-2020M1065727

PATIENT
  Age: 25 Year
  Sex: Female

DRUGS (7)
  1. SAMTIREL [Suspect]
     Active Substance: ATOVAQUONE
     Indication: PRODUCT USED FOR UNKNOWN INDICATION
     Dosage: UNK
     Route: 048
  2. LENDORMIN [Concomitant]
     Active Substance: BROTIZOLAM
     Dosage: UNK
  3. PREDNISOLONE. [Concomitant]
     Active Substance: PREDNISOLONE
     Dosage: UNK
  4. OMEPRAZON [Concomitant]
     Active Substance: OMEPRAZOLE
     Dosage: UNK
  5. ACICLOVIR [Suspect]
     Active Substance: ACYCLOVIR
     Indication: PRODUCT USED FOR UNKNOWN INDICATION
     Dosage: FOR LESS THAN 3 YEARS
     Route: 048
     Dates: start: 2017
  6. URSO [Concomitant]
     Active Substance: URSODIOL
     Dosage: UNK
  7. FLUCONAZOLE. [Concomitant]
     Active Substance: FLUCONAZOLE
     Dosage: UNK

REACTIONS (12)
  - Fungal infection [Unknown]
  - Oesophagitis [Unknown]
  - Disseminated intravascular coagulation [Unknown]
  - Staphylococcal infection [Unknown]
  - Stomatitis [Unknown]
  - Product use issue [Unknown]
  - Death [Fatal]
  - Hepatomegaly [Unknown]
  - Disease recurrence [Unknown]
  - Platelet count decreased [Unknown]
  - White blood cell count decreased [Unknown]
  - Incorrect product administration duration [Unknown]

NARRATIVE: CASE EVENT DATE: 202003
